FAERS Safety Report 17570480 (Version 1)
Quarter: 2020Q1

REPORT INFORMATION
  Report Type: Spontaneous
  Country: DE (occurrence: DE)
  Receive Date: 20200323
  Receipt Date: 20200323
  Transmission Date: 20200409
  Serious: Yes (Other)
  Sender: FDA-Public Use
  Company Number: DE-TEVA-2020-DE-1207566

PATIENT
  Sex: Female

DRUGS (4)
  1. ESTRADIOL. [Suspect]
     Active Substance: ESTRADIOL
     Indication: PRODUCT USED FOR UNKNOWN INDICATION
     Dosage: LITTLE BIT MORE THAN 1 PUFF DAILY FOR SEVERAL YEARS
     Route: 065
  2. PROGESTERONE. [Suspect]
     Active Substance: PROGESTERONE
     Indication: PRODUCT USED FOR UNKNOWN INDICATION
     Dosage: SIMULTATION APPLICATION OF ORAL AND VAGINAL APPLICATION; CYCLICALLY ADMINISTRATION OF UNKNOWN DAYS (
     Route: 067
  3. BISOPROLOL [Concomitant]
     Active Substance: BISOPROLOL
     Indication: BLOOD PRESSURE INCREASED
     Dosage: 2.5 MILLIGRAM DAILY; START DATE: MANY YEARS AGO, 2.5 MILLIGRAM, 1 IN 1 D
  4. PROGESTERONE. [Suspect]
     Active Substance: PROGESTERONE
     Dosage: CYCLICALY ADMINISTRATION OF UNKNOWN DAYS (1 CYCLICAL )
     Route: 048

REACTIONS (4)
  - Incorrect dosage administered [Unknown]
  - Atrial fibrillation [Recovered/Resolved]
  - Incorrect route of product administration [Unknown]
  - Panic attack [Recovered/Resolved]

NARRATIVE: CASE EVENT DATE: 201903
